FAERS Safety Report 17436005 (Version 2)
Quarter: 2020Q2

REPORT INFORMATION
  Report Type: Report from Study
  Country: JP (occurrence: JP)
  Receive Date: 20200219
  Receipt Date: 20200407
  Transmission Date: 20200713
  Serious: Yes (Other)
  Sender: FDA-Public Use
  Company Number: JP-PFIZER INC-2020065659

PATIENT

DRUGS (14)
  1. TACROLIMUS. [Suspect]
     Active Substance: TACROLIMUS
     Indication: CORD BLOOD TRANSPLANT THERAPY
  2. URSODEOXYCHOLIC ACID [Concomitant]
     Active Substance: URSODIOL
     Indication: PROPHYLAXIS
  3. HEPARIN [Concomitant]
     Active Substance: HEPARIN SODIUM
     Indication: VENOOCCLUSIVE LIVER DISEASE
  4. MICAFUNGIN. [Concomitant]
     Active Substance: MICAFUNGIN SODIUM
     Indication: ANTIBIOTIC PROPHYLAXIS
     Dosage: UNK
  5. URSODEOXYCHOLIC ACID [Concomitant]
     Active Substance: URSODIOL
     Indication: VENOOCCLUSIVE LIVER DISEASE
  6. METHOTREXATE SODIUM. [Suspect]
     Active Substance: METHOTREXATE SODIUM
     Indication: PROPHYLAXIS AGAINST GRAFT VERSUS HOST DISEASE
     Dosage: 5 MG/M2, UNK (ON DAYS 1, 3, AND 6 AFTER TRANSPLANTATION)
  7. G-CSF [Concomitant]
     Active Substance: GRANULOCYTE COLONY-STIMULATING FACTOR NOS
     Dosage: UNK (FROM DAY 5 UNTIL NEUTROPHIL ENGRAFTMENT)
  8. LEVOFLOXACIN. [Concomitant]
     Active Substance: LEVOFLOXACIN
     Indication: ANTIBIOTIC PROPHYLAXIS
     Dosage: UNK
  9. URSODEOXYCHOLIC ACID [Concomitant]
     Active Substance: URSODIOL
     Indication: VENOOCCLUSIVE DISEASE
     Dosage: UNK
  10. HEPARIN [Concomitant]
     Active Substance: HEPARIN SODIUM
     Indication: PROPHYLAXIS
  11. METHOTREXATE SODIUM. [Suspect]
     Active Substance: METHOTREXATE SODIUM
     Indication: CORD BLOOD TRANSPLANT THERAPY
  12. ACYCLOVIR SODIUM. [Concomitant]
     Active Substance: ACYCLOVIR SODIUM
     Indication: ANTIBIOTIC PROPHYLAXIS
     Dosage: UNK
  13. HEPARIN [Concomitant]
     Active Substance: HEPARIN SODIUM
     Indication: VENOOCCLUSIVE DISEASE
     Dosage: UNK
  14. TACROLIMUS. [Suspect]
     Active Substance: TACROLIMUS
     Indication: PROPHYLAXIS AGAINST GRAFT VERSUS HOST DISEASE
     Dosage: UNK

REACTIONS (1)
  - Human herpesvirus 6 encephalitis [Unknown]
